FAERS Safety Report 21697824 (Version 5)
Quarter: 2025Q3

REPORT INFORMATION
  Report Type: Spontaneous
  Country: JP (occurrence: JP)
  Receive Date: 20221208
  Receipt Date: 20250904
  Transmission Date: 20251020
  Serious: Yes (Hospitalization)
  Sender: RECORDATI
  Company Number: JP-ORPHANEU-2022006490

PATIENT
  Age: 26 Year
  Sex: Male
  Weight: 60.1 kg

DRUGS (14)
  1. CARBAGLU [Suspect]
     Active Substance: CARGLUMIC ACID
     Indication: Hyperammonaemia
     Route: 048
     Dates: start: 20221031, end: 20221128
  2. CARBAGLU [Suspect]
     Active Substance: CARGLUMIC ACID
     Indication: Propionic acidaemia
  3. SPIRONOLACTONE [Concomitant]
     Active Substance: SPIRONOLACTONE
     Indication: Disease complication
     Dosage: 25 MG/DAILY, BID (TABLET)
     Route: 048
  4. LOSARTAN POTASSIUM [Concomitant]
     Active Substance: LOSARTAN POTASSIUM
     Indication: Disease complication
     Dosage: 25 MG/DAILY, BID (TABLET)
     Route: 048
  5. CARVEDILOL [Concomitant]
     Active Substance: CARVEDILOL
     Indication: Product used for unknown indication
     Dosage: 2.5 MG/DAILY, BID (TABLET)
     Route: 048
  6. SAMSCA [Concomitant]
     Active Substance: TOLVAPTAN
     Indication: Product used for unknown indication
     Dosage: 3.75 MG/DAILY, BID  (OD TABLET)
     Route: 048
  7. PIMOBENDAN [Concomitant]
     Active Substance: PIMOBENDAN
     Indication: Product used for unknown indication
     Dosage: 2.5 MG/DAILY, BID (TABLET)
     Route: 048
  8. Levocarnitine ff [Concomitant]
     Indication: Product used for unknown indication
     Dosage: 11000 MG/DAILY, TID
     Route: 048
  9. BIOTIN [Concomitant]
     Active Substance: BIOTIN
     Indication: Product used for unknown indication
     Dosage: 2.58 MG/DAILY, BID TABLET
     Route: 048
  10. REBAMIPIDE [Concomitant]
     Active Substance: REBAMIPIDE
     Indication: Disease complication
     Dosage: 200 MG/DAILY, BID TABLET
     Route: 048
  11. FAMOTIDINE [Concomitant]
     Active Substance: FAMOTIDINE
     Indication: Disease complication
     Dosage: 20 MG/DAILY, BID, TABLET
     Route: 048
  12. FLAGYL [Concomitant]
     Active Substance: METRONIDAZOLE\METRONIDAZOLE HYDROCHLORIDE
     Indication: Product used for unknown indication
     Dosage: 500 MG/DAILY, BID (TABLET)
     Route: 048
  13. LACTULOSE [Concomitant]
     Active Substance: LACTULOSE
     Indication: Product used for unknown indication
     Dosage: 10 ML/DAILY, BID (60% SYRAP)
     Route: 048
  14. FEXOFENADINE [Concomitant]
     Active Substance: FEXOFENADINE HYDROCHLORIDE
     Indication: Rhinitis allergic
     Dosage: 120 MG/DAILY, BID
     Route: 048

REACTIONS (5)
  - Dyspnoea [Recovered/Resolved]
  - Urine ketone body present [Recovered/Resolved]
  - Hyperlactacidaemia [Recovered/Resolved]
  - Tachycardia [Recovered/Resolved]
  - PCO2 decreased [Recovered/Resolved]

NARRATIVE: CASE EVENT DATE: 20221128
